FAERS Safety Report 25312756 (Version 1)
Quarter: 2025Q2

REPORT INFORMATION
  Report Type: Spontaneous
  Country: TW (occurrence: TW)
  Receive Date: 20250514
  Receipt Date: 20250514
  Transmission Date: 20250716
  Serious: Yes (Other)
  Sender: PFIZER
  Company Number: TW-PFIZER INC-PV202500056916

PATIENT
  Age: 63 Year
  Sex: Male

DRUGS (1)
  1. ELRANATAMAB [Suspect]
     Active Substance: ELRANATAMAB
     Indication: Plasma cell myeloma refractory

REACTIONS (4)
  - Salmonella bacteraemia [Unknown]
  - Thrombocytopenia [Unknown]
  - Subdural haematoma [Unknown]
  - Cytokine release syndrome [Unknown]
